FAERS Safety Report 7137420-0 (Version None)
Quarter: 2010Q4

REPORT INFORMATION
  Report Type: 
  Country: None (occurrence: None)
  Receive Date: 20101119
  Receipt Date: 20101025
  Transmission Date: 20110411
  Serious: Yes (Life-Threatening)
  Sender: FDA-Public Use
  Company Number: 54973

PATIENT
  Age: 17 Month
  Sex: Female
  Weight: 9.9791 kg

DRUGS (1)
  1. HYLAND'S TEETHING TABLETS [Suspect]
     Indication: TEETHING
     Dosage: ASS NEEDED ON DLY BASIS

REACTIONS (5)
  - CONVULSION [None]
  - MICTURITION DISORDER [None]
  - STARING [None]
  - TRANCE [None]
  - VOMITING [None]
